FAERS Safety Report 9931224 (Version 2)
Quarter: 2014Q1

REPORT INFORMATION
  Report Type: Spontaneous
  Country: FI (occurrence: FI)
  Receive Date: 20140228
  Receipt Date: 20140321
  Transmission Date: 20141002
  Serious: Yes (Disabling, Other)
  Sender: FDA-Public Use
  Company Number: FI-RANBAXY-2014RR-78470

PATIENT
  Age: 59 Year
  Sex: Male

DRUGS (3)
  1. ATORVASTATIN ORION 10MG TABLETTI, KALVOPAALLYSTEINEN [Suspect]
     Indication: PRODUCT USED FOR UNKNOWN INDICATION
     Dosage: 10 MG, QD
     Route: 048
     Dates: start: 2013
  2. ASASANTIN RETARD [Concomitant]
     Indication: PRODUCT USED FOR UNKNOWN INDICATION
     Dosage: 1 DF, BID
     Route: 048
  3. CANDESARTAN ORION [Concomitant]
     Indication: PRODUCT USED FOR UNKNOWN INDICATION
     Dosage: 8 MG, QD
     Route: 048

REACTIONS (8)
  - Arthralgia [Recovering/Resolving]
  - Myalgia [Recovering/Resolving]
  - Oedema peripheral [Recovering/Resolving]
  - Musculoskeletal stiffness [Recovering/Resolving]
  - Musculoskeletal pain [Recovering/Resolving]
  - Sleep disorder [Recovering/Resolving]
  - Inflammation [Recovering/Resolving]
  - Activities of daily living impaired [Recovering/Resolving]
